FAERS Safety Report 14281553 (Version 3)
Quarter: 2018Q3

REPORT INFORMATION
  Report Type: Spontaneous
  Country: DE (occurrence: DE)
  Receive Date: 20171213
  Receipt Date: 20180925
  Transmission Date: 20181010
  Serious: Yes (Hospitalization, Other)
  Sender: FDA-Public Use
  Company Number: DE-SA-2017SA244529

PATIENT
  Age: 50 Year
  Sex: Male
  Weight: 87 kg

DRUGS (17)
  1. CAPECITABINE. [Suspect]
     Active Substance: CAPECITABINE
     Dosage: 4000 MG,UNK,D1?14 FOLLOWED BY 7D PAUSE
     Route: 048
     Dates: start: 20160523, end: 20160526
  2. BEVACIZUMAB. [Suspect]
     Active Substance: BEVACIZUMAB
     Indication: COLORECTAL CANCER
     Dosage: 645 MG,Q3W
     Route: 042
     Dates: start: 20160209, end: 20160209
  3. BEVACIZUMAB. [Suspect]
     Active Substance: BEVACIZUMAB
     Dosage: 645 MG,Q3W
     Route: 042
     Dates: start: 20160412, end: 20160412
  4. BEVACIZUMAB. [Suspect]
     Active Substance: BEVACIZUMAB
     Dosage: 742.5 MG,Q3W
     Route: 042
     Dates: start: 20160818, end: 20160818
  5. TILIDIN [Concomitant]
     Active Substance: NALOXONE HYDROCHLORIDE\TILIDINE HYDROCHLORIDE
     Route: 065
  6. OXALIPLATIN. [Suspect]
     Active Substance: OXALIPLATIN
     Dosage: 262.6 MG,Q3W
     Route: 042
     Dates: start: 20160322, end: 20160322
  7. OXALIPLATIN. [Suspect]
     Active Substance: OXALIPLATIN
     Dosage: UNK UNK,QCY
     Route: 042
     Dates: start: 20160613, end: 20160613
  8. CAPECITABINE. [Suspect]
     Active Substance: CAPECITABINE
     Dosage: 56000 MG,UNK,PER DAY FOR 14 DAYS FOLLOWED BY A BREAK OF 7 DAYS.
     Route: 048
     Dates: start: 20160322
  9. CAPECITABINE. [Suspect]
     Active Substance: CAPECITABINE
     Dosage: 54000 MG,QD,PER DAY FOR 14 DAYS FOLLOWED BY A BREAK OF 7 DAYS.
     Route: 048
     Dates: start: 20160209, end: 20160223
  10. CAPECITABINE. [Suspect]
     Active Substance: CAPECITABINE
     Dosage: 56000 MG,UNK
     Route: 048
     Dates: start: 20160301, end: 20160314
  11. CAPECITABINE. [Suspect]
     Active Substance: CAPECITABINE
     Dosage: 6000 MG,UNK
     Route: 048
     Dates: start: 20160613, end: 20160615
  12. BEVACIZUMAB. [Suspect]
     Active Substance: BEVACIZUMAB
     Dosage: UNK UNK,UNK
     Route: 042
     Dates: start: 20160322, end: 20160322
  13. OXALIPLATIN. [Suspect]
     Active Substance: OXALIPLATIN
     Indication: COLORECTAL CANCER
     Dosage: 262.6 MG,Q3W
     Route: 042
     Dates: start: 20160209, end: 20160209
  14. OXALIPLATIN. [Suspect]
     Active Substance: OXALIPLATIN
     Dosage: 262.6 MG,Q3W
     Route: 042
     Dates: start: 20160301, end: 20160301
  15. OXALIPLATIN. [Suspect]
     Active Substance: OXALIPLATIN
     Dosage: 210.08 MG,Q3W
     Route: 042
     Dates: start: 20160412, end: 20160412
  16. OXALIPLATIN. [Suspect]
     Active Substance: OXALIPLATIN
     Dosage: 135.2 MG,Q3W
     Route: 042
     Dates: start: 20160523, end: 20160523
  17. CAPECITABINE. [Suspect]
     Active Substance: CAPECITABINE
     Dosage: 49000 MG,UNK
     Route: 048
     Dates: start: 20160412, end: 20160425

REACTIONS (8)
  - Nausea [Recovered/Resolved]
  - Myalgia [Recovered/Resolved]
  - Anaemia [Not Recovered/Not Resolved]
  - Myalgia [Recovered/Resolved]
  - Fatigue [Recovered/Resolved]
  - Stoma site haemorrhage [Not Recovered/Not Resolved]
  - Stoma site haemorrhage [Recovered/Resolved]
  - Dyspnoea exertional [Recovered/Resolved]

NARRATIVE: CASE EVENT DATE: 20160210
